FAERS Safety Report 5309477-0 (Version None)
Quarter: 2007Q2

REPORT INFORMATION
  Report Type: 
  Country: None (occurrence: None)
  Receive Date: 20070427
  Receipt Date: 20070419
  Transmission Date: 20071010
  Serious: Yes (Other)
  Sender: FDA-Public Use
  Company Number: PHEH2007US01621

PATIENT
  Age: 82 Year
  Sex: Female
  Weight: 84.353 kg

DRUGS (17)
  1. PROCRIT [Concomitant]
  2. ZOMETA [Suspect]
     Indication: MULTIPLE MYELOMA
     Dosage: 4 MG EVERY 4 WEEKS
     Dates: start: 20030501, end: 20051201
  3. ZOMETA [Suspect]
     Dosage: 3 MG MONTHLY
     Dates: start: 20060101, end: 20060111
  4. ATACAND [Concomitant]
  5. LANOXIN [Concomitant]
     Dosage: 0.25 MG, QD
  6. CARTIA XT [Concomitant]
     Dosage: 300 MG, QD
  7. ZETIA [Concomitant]
     Dosage: 10 MG, QD
  8. PREVACID [Concomitant]
     Dosage: 30 MG, QD
  9. SYNTHROID [Concomitant]
     Dosage: 0.1 MG, QD
  10. OMACOR [Concomitant]
     Dosage: 1 G, BID
  11. PRAVACHOL [Concomitant]
     Dosage: 40 MG, QD
  12. EFFEXOR [Concomitant]
     Dosage: 75 MG, QD
  13. EFFEXOR [Concomitant]
     Dosage: 75 MG, QD
  14. FOLIC ACID [Concomitant]
     Dosage: 1 MG, QD
     Dates: start: 20030201
  15. FERROUS SULFATE [Concomitant]
     Dosage: 325 MG, QD
     Dates: start: 20030201
  16. ALKERAN [Concomitant]
     Dosage: 12 MG QD FOR FOUR DAYS EVERY SIX WEEKS
     Route: 048
     Dates: start: 20040201
  17. PREDNISONE TAB [Concomitant]
     Dosage: 60 MG QD X 4 DAYS EVERY SIX WEEKS
     Route: 048
     Dates: start: 20040201

REACTIONS (21)
  - BONE DISORDER [None]
  - BONE LESION [None]
  - CATHETER PLACEMENT [None]
  - DENTAL FISTULA [None]
  - DENTAL OPERATION [None]
  - EXCESSIVE GRANULATION TISSUE [None]
  - FATIGUE [None]
  - FLUCTUANCE [None]
  - GINGIVAL INFECTION [None]
  - GINGIVAL SWELLING [None]
  - GINGIVITIS [None]
  - HYPOAESTHESIA [None]
  - JAW OPERATION [None]
  - LYMPHADENOPATHY [None]
  - MUCOSAL INFLAMMATION [None]
  - OSTEOMYELITIS [None]
  - OSTEONECROSIS [None]
  - OSTEOPENIA [None]
  - PAIN IN JAW [None]
  - SOFT TISSUE INFECTION [None]
  - TOOTH EXTRACTION [None]
